FAERS Safety Report 9995624 (Version 2)
Quarter: 2014Q1

REPORT INFORMATION
  Report Type: Spontaneous
  Country: US (occurrence: US)
  Receive Date: 20140311
  Receipt Date: 20140327
  Transmission Date: 20141002
  Serious: No
  Sender: FDA-Public Use
  Company Number: US-009507513-1403USA000817

PATIENT
  Sex: Female
  Weight: 82.54 kg

DRUGS (2)
  1. OXYTROL FOR WOMEN [Suspect]
     Indication: MICTURITION URGENCY
     Dosage: UNK, Q4D
     Route: 062
  2. LISINOPRIL [Concomitant]
     Indication: BLOOD PRESSURE
     Dosage: UNK, UNKNOWN

REACTIONS (4)
  - Application site burn [Recovering/Resolving]
  - Pain of skin [Unknown]
  - Skin irritation [Unknown]
  - Scar [Not Recovered/Not Resolved]
